FAERS Safety Report 23761693 (Version 2)
Quarter: 2024Q2

REPORT INFORMATION
  Report Type: Spontaneous
  Country: CZ (occurrence: CZ)
  Receive Date: 20240419
  Receipt Date: 20240614
  Transmission Date: 20240715
  Serious: Yes (Hospitalization, Other)
  Sender: FDA-Public Use
  Company Number: CZ-MLMSERVICE-20240329-4923672-1

PATIENT
  Age: 75 Year
  Sex: Female

DRUGS (9)
  1. FOSFOMYCIN TROMETHAMINE [Suspect]
     Active Substance: FOSFOMYCIN TROMETHAMINE
     Indication: Pathogen resistance
     Dosage: MISTAKENLY TOOK IT TWICE IN ONE DAY
  2. FOSFOMYCIN TROMETHAMINE [Suspect]
     Active Substance: FOSFOMYCIN TROMETHAMINE
     Indication: Klebsiella urinary tract infection
     Dosage: UNK
  3. FOSFOMYCIN TROMETHAMINE [Suspect]
     Active Substance: FOSFOMYCIN TROMETHAMINE
     Indication: Klebsiella infection
  4. NITROFURANTOIN [Suspect]
     Active Substance: NITROFURANTOIN
     Indication: Pathogen resistance
  5. NITROFURANTOIN [Suspect]
     Active Substance: NITROFURANTOIN
     Indication: Klebsiella urinary tract infection
  6. NITROFURANTOIN [Suspect]
     Active Substance: NITROFURANTOIN
     Indication: Klebsiella infection
  7. AUGMENTIN [Suspect]
     Active Substance: AMOXICILLIN\CLAVULANATE POTASSIUM
     Indication: Klebsiella urinary tract infection
  8. AUGMENTIN [Suspect]
     Active Substance: AMOXICILLIN\CLAVULANATE POTASSIUM
     Indication: Pathogen resistance
  9. AUGMENTIN [Suspect]
     Active Substance: AMOXICILLIN\CLAVULANATE POTASSIUM
     Indication: Klebsiella infection

REACTIONS (4)
  - Nephropathy toxic [Recovered/Resolved]
  - Extra dose administered [Unknown]
  - Drug hypersensitivity [Unknown]
  - Renal failure [Recovered/Resolved]
